FAERS Safety Report 16963577 (Version 3)
Quarter: 2020Q1

REPORT INFORMATION
  Report Type: Report from Study
  Country: US (occurrence: US)
  Receive Date: 20191025
  Receipt Date: 20200303
  Transmission Date: 20200409
  Serious: Yes (Hospitalization)
  Sender: FDA-Public Use
  Company Number: US-GILEAD-2019-0417564

PATIENT
  Age: 65 Year
  Sex: Male
  Weight: 140.8 kg

DRUGS (79)
  1. FENTANYL. [Concomitant]
     Active Substance: FENTANYL
     Dosage: 25,UG,FOUR TIMES DAILY
     Route: 042
     Dates: start: 20190619, end: 20190619
  2. MIDAZOLAM HYDROCHLORIDE. [Concomitant]
     Active Substance: MIDAZOLAM HYDROCHLORIDE
     Dosage: 0.5,MG,FOUR TIMES DAILY
     Route: 042
     Dates: start: 20190619, end: 20190619
  3. NORMAL SALINE [Concomitant]
     Active Substance: SODIUM CHLORIDE
     Dosage: 1000,ML,CONTINUOUS
     Route: 042
     Dates: start: 20190620, end: 20190620
  4. NORMAL SALINE [Concomitant]
     Active Substance: SODIUM CHLORIDE
     Dosage: 500 ML
     Route: 042
     Dates: start: 20190625, end: 20190625
  5. NORMAL SALINE [Concomitant]
     Active Substance: SODIUM CHLORIDE
     Dosage: 1000,ML,CONTINUOUS
     Route: 042
     Dates: start: 20190703, end: 20190703
  6. ENTECAVIR. [Concomitant]
     Active Substance: ENTECAVIR
     Dosage: 0.5,MG,DAILY; 5 MG ORAL TABLET
     Route: 048
     Dates: start: 20190620
  7. ENTECAVIR. [Concomitant]
     Active Substance: ENTECAVIR
     Dosage: 0.5,MG,DAILY; 5 MG ORAL TABLET
     Dates: start: 20190624, end: 20190709
  8. PENTAMIDINE [Concomitant]
     Active Substance: PENTAMIDINE
     Dosage: 300,MG,ONCE
     Route: 055
     Dates: start: 20190620, end: 20190620
  9. AQUAPHOR [WHITE SOFT PARAFFIN] [Concomitant]
     Dosage: 1,OTHER,AS NECESSARY
     Route: 061
     Dates: start: 20190624, end: 20190704
  10. INSULIN ASPART PROTAMINE [Concomitant]
     Dosage: 1,OTHER,ONCE
     Route: 058
     Dates: start: 20190627, end: 20190627
  11. INSULIN ASPART PROTAMINE [Concomitant]
     Dosage: 46,OTHER,AS NECESSARY
     Route: 058
     Dates: start: 20190705, end: 20190705
  12. ACETAMINOPHEN. [Concomitant]
     Active Substance: ACETAMINOPHEN
     Dosage: 650,MG,ONCE
     Route: 048
     Dates: start: 20190724, end: 20190724
  13. ATENOLOL. [Concomitant]
     Active Substance: ATENOLOL
     Dosage: 50,MG,TWICE DAILY
     Route: 048
     Dates: start: 20190624, end: 20190702
  14. AXICABTAGENE CILOLEUCEL [Suspect]
     Active Substance: AXICABTAGENE CILOLEUCEL
     Indication: DIFFUSE LARGE B-CELL LYMPHOMA REFRACTORY
     Dosage: 68 ML, ONCE
     Route: 042
     Dates: start: 20190625, end: 20190625
  15. CYCLOPHOSPHAMIDE. [Suspect]
     Active Substance: CYCLOPHOSPHAMIDE
     Indication: BONE MARROW CONDITIONING REGIMEN
     Dosage: 500 MG/M2
     Route: 042
     Dates: start: 20190620, end: 20190622
  16. DEXAMETHASONE. [Suspect]
     Active Substance: DEXAMETHASONE
     Dosage: 4 MG, ONCE
     Route: 042
     Dates: start: 20190717, end: 20190717
  17. DEXAMETHASONE. [Suspect]
     Active Substance: DEXAMETHASONE
     Dosage: 2 MG, ONCE
     Route: 042
     Dates: start: 20190717, end: 20190717
  18. METFORMIN [Concomitant]
     Active Substance: METFORMIN HYDROCHLORIDE
     Dosage: 1000,MG,TWICE DAILY
     Route: 048
     Dates: start: 20190614
  19. PALONOSETRON. [Concomitant]
     Active Substance: PALONOSETRON HYDROCHLORIDE
     Dosage: 250,UG,ONCE
     Route: 042
     Dates: start: 20190620, end: 20190620
  20. VITAMIN D3 [Concomitant]
     Active Substance: CHOLECALCIFEROL
     Dosage: 2000,OTHER,DAILY
     Route: 048
     Dates: start: 20190624, end: 20190722
  21. BACITRACIN. [Concomitant]
     Active Substance: BACITRACIN
     Dosage: 1,OTHER,DAILY
     Route: 061
     Dates: start: 20190624, end: 20190712
  22. DEXAMETHASONE. [Suspect]
     Active Substance: DEXAMETHASONE
     Dosage: 6 MG, BID
     Route: 042
     Dates: start: 20190713, end: 20190714
  23. DEXAMETHASONE. [Suspect]
     Active Substance: DEXAMETHASONE
     Dosage: 2 MG, ONCE
     Route: 042
     Dates: start: 20190715, end: 20190715
  24. NORMAL SALINE [Concomitant]
     Active Substance: SODIUM CHLORIDE
     Dosage: 1000,ML,DAILY
     Route: 042
     Dates: start: 20190621, end: 20190625
  25. DILTIAZEM [DILTIAZEM HYDROCHLORIDE] [Concomitant]
     Active Substance: DILTIAZEM HYDROCHLORIDE
     Dosage: 75,MG,FOUR TIMES DAILY
     Route: 048
     Dates: start: 20190624, end: 20190702
  26. ACYCLOVIR [ACICLOVIR] [Concomitant]
     Active Substance: ACYCLOVIR
     Dosage: 400 MG, BID
     Route: 042
     Dates: start: 20190707, end: 20190709
  27. CLONIDINE. [Concomitant]
     Active Substance: CLONIDINE
     Dosage: 0.1 MG, BID
     Route: 048
     Dates: start: 20190719, end: 20190722
  28. DEXAMETHASONE. [Suspect]
     Active Substance: DEXAMETHASONE
     Dosage: 2 MG, QD
     Route: 048
     Dates: start: 20190721, end: 20190721
  29. DEXAMETHASONE. [Suspect]
     Active Substance: DEXAMETHASONE
     Dosage: 2 MG
     Route: 048
     Dates: start: 20190721, end: 20190722
  30. LEVAQUIN [Concomitant]
     Active Substance: LEVOFLOXACIN
  31. FENTANYL. [Concomitant]
     Active Substance: FENTANYL
     Dosage: 50,UG,ONCE
     Route: 042
     Dates: start: 20190619, end: 20190619
  32. NORMAL SALINE [Concomitant]
     Active Substance: SODIUM CHLORIDE
     Dosage: 500,ML,CONTINUOUS
     Route: 042
     Dates: start: 20190619, end: 20190619
  33. NORMAL SALINE [Concomitant]
     Active Substance: SODIUM CHLORIDE
     Dosage: 500 ML
     Route: 042
     Dates: start: 20190625, end: 20190625
  34. ENTECAVIR. [Concomitant]
     Active Substance: ENTECAVIR
     Dosage: 0.5,MG,DAILY; 5 MG ORAL TABLET
     Dates: start: 20190713, end: 20190721
  35. INSULIN ASPART PROTAMINE [Concomitant]
     Dosage: 19,OTHER,AS NECESSARY
     Route: 058
     Dates: start: 20190702, end: 20190702
  36. DEXAMETHASONE. [Suspect]
     Active Substance: DEXAMETHASONE
     Dosage: 10 MG, BID
     Route: 065
     Dates: start: 20190710, end: 20190711
  37. DEXAMETHASONE. [Suspect]
     Active Substance: DEXAMETHASONE
     Dosage: 8 MG, BID
     Route: 042
     Dates: start: 20190711, end: 20190712
  38. DEXAMETHASONE. [Suspect]
     Active Substance: DEXAMETHASONE
     Dosage: 4 MG, QD
     Route: 042
     Dates: start: 20190714, end: 20190715
  39. NORMAL SALINE [Concomitant]
     Active Substance: SODIUM CHLORIDE
     Dosage: 1000,ML,CONTINUOUS
     Route: 042
     Dates: start: 20190620, end: 20190621
  40. ENTECAVIR. [Concomitant]
     Active Substance: ENTECAVIR
     Dosage: 0.5 MG, QOD
     Route: 048
     Dates: start: 20190709, end: 20190712
  41. ACETAMINOPHEN. [Concomitant]
     Active Substance: ACETAMINOPHEN
     Dosage: 650,MG,ONCE
     Route: 048
     Dates: start: 20190625, end: 20190625
  42. ACETAMINOPHEN. [Concomitant]
     Active Substance: ACETAMINOPHEN
     Dosage: 650,MG,ONCE
     Route: 048
     Dates: start: 20190701, end: 20190701
  43. ACYCLOVIR [ACICLOVIR] [Concomitant]
     Active Substance: ACYCLOVIR
     Dosage: 400 MG, BID
     Route: 042
     Dates: start: 20190710, end: 20190711
  44. DEXAMETHASONE. [Suspect]
     Active Substance: DEXAMETHASONE
     Dosage: 2 MG, QD
     Route: 065
     Dates: start: 20190718, end: 20190720
  45. KEPPRA [Concomitant]
     Active Substance: LEVETIRACETAM
     Dosage: 500,MG,TWICE DAILY
     Route: 048
     Dates: start: 20190615, end: 20190714
  46. ALBUTEROL [SALBUTAMOL] [Concomitant]
     Active Substance: ALBUTEROL
     Dosage: 3,ML,ONCE
     Route: 055
     Dates: start: 20190620, end: 20190620
  47. INSULIN ASPART PROTAMINE [Concomitant]
     Dosage: 2,OTHER,AS NECESSARY
     Route: 058
     Dates: start: 20190626, end: 20190626
  48. TRAVOPROST. [Concomitant]
     Active Substance: TRAVOPROST
     Dosage: 1,OTHER,DAILY
     Dates: start: 20190624, end: 20190721
  49. SENNATAB [Concomitant]
     Dosage: 17.2,MG,DAILY
     Route: 048
     Dates: start: 20190624, end: 20190701
  50. ACYCLOVIR [ACICLOVIR] [Concomitant]
     Active Substance: ACYCLOVIR
     Dosage: 400 MG, QD
     Route: 048
     Dates: start: 20190712, end: 20190722
  51. CLONIDINE. [Concomitant]
     Active Substance: CLONIDINE
     Dosage: 0.1 MG/24 HR PATCH
     Route: 062
     Dates: start: 20190707, end: 20190717
  52. DEXAMETHASONE. [Suspect]
     Active Substance: DEXAMETHASONE
     Dosage: 2 MG, TID
     Route: 042
     Dates: start: 20190716, end: 20190716
  53. AZOPT [Concomitant]
     Active Substance: BRINZOLAMIDE
     Dosage: 1,OTHER,TWICE DAILY; 1% OPHALMIC SUSPENSION
     Route: 031
     Dates: start: 20190614
  54. INSULIN ASPART PROTAMINE [Concomitant]
     Dosage: 8,OTHER,AS NECESSARY
     Route: 058
     Dates: start: 20190630, end: 20190630
  55. INSULIN ASPART PROTAMINE [Concomitant]
     Dosage: 24,OTHER,AS NECESSARY
     Route: 058
     Dates: start: 20190703, end: 20190703
  56. DIPHENHYDRAMINE. [Concomitant]
     Active Substance: DIPHENHYDRAMINE
     Dosage: 25,MG,ONCE
     Route: 048
     Dates: start: 20190625, end: 20190625
  57. ATENOLOL. [Concomitant]
     Active Substance: ATENOLOL
     Dosage: 50,MG,TWICE DAILY
     Route: 048
     Dates: start: 20190704, end: 20190706
  58. TRAVOPROST. [Concomitant]
     Active Substance: TRAVOPROST
     Dosage: 1,OTHER,TWICE DAILY
     Route: 031
     Dates: start: 20190624, end: 20190712
  59. LORAZEPAM. [Concomitant]
     Active Substance: LORAZEPAM
     Dosage: 0.5,MG,ONCE
     Route: 048
     Dates: start: 20190624, end: 20190624
  60. LEVETIRACETAM. [Concomitant]
     Active Substance: LEVETIRACETAM
     Dosage: 500,MG,TWICE DAILY
     Route: 048
     Dates: start: 20190624, end: 20190706
  61. CLONIDINE. [Concomitant]
     Active Substance: CLONIDINE
     Dosage: 0.1 MG, ONCE
     Dates: start: 20190624, end: 20190706
  62. FLUDARABINE [Suspect]
     Active Substance: FLUDARABINE PHOSPHATE
     Indication: BONE MARROW CONDITIONING REGIMEN
     Dosage: 30 MG/M2
     Route: 042
     Dates: start: 20190620, end: 20190622
  63. DEXAMETHASONE. [Suspect]
     Active Substance: DEXAMETHASONE
     Indication: NEUROTOXICITY
     Dosage: 10 MG, BID
     Route: 042
     Dates: start: 20190701, end: 20190707
  64. DEXAMETHASONE. [Suspect]
     Active Substance: DEXAMETHASONE
     Dosage: 8 MG, BID
     Route: 065
     Dates: start: 20190707, end: 20190708
  65. DEXAMETHASONE. [Suspect]
     Active Substance: DEXAMETHASONE
     Dosage: 4 MG, QD
     Route: 042
     Dates: start: 20190718, end: 20190720
  66. INSULIN [Concomitant]
     Active Substance: INSULIN NOS
  67. MIDAZOLAM HYDROCHLORIDE. [Concomitant]
     Active Substance: MIDAZOLAM HYDROCHLORIDE
     Dosage: 1,MG,ONCE
     Route: 042
     Dates: start: 20190619, end: 20190619
  68. PIPERACILLIN AND TAZOBACTAM [Concomitant]
     Active Substance: PIPERACILLIN SODIUM\TAZOBACTAM SODIUM
     Dosage: 4.5,G,FOUR TIMES DAILY
     Route: 042
     Dates: start: 20190630, end: 20190704
  69. INSULIN ASPART PROTAMINE [Concomitant]
     Dosage: 1,OTHER,ONCE
     Route: 058
     Dates: start: 20190629, end: 20190629
  70. INSULIN ASPART PROTAMINE [Concomitant]
     Dosage: 8,OTHER,AS NECESSARY
     Route: 058
     Dates: start: 20190701, end: 20190701
  71. INSULIN ASPART PROTAMINE [Concomitant]
     Dosage: 40,OTHER,AS NECESSARY
     Route: 058
     Dates: start: 20190704, end: 20190704
  72. BRINZOLAMIDE [Concomitant]
     Active Substance: BRINZOLAMIDE
     Dosage: 1,OTHER,TWICE DAILY
     Route: 031
     Dates: start: 20190624, end: 20190722
  73. ASPIRIN (E.C.) [Concomitant]
     Active Substance: ASPIRIN
     Dosage: 81,MG,DAILY
     Route: 048
     Dates: start: 20190625, end: 20190722
  74. ENALAPRIL [Concomitant]
     Active Substance: ENALAPRIL
     Dosage: 20,MG,DAILY
     Route: 048
     Dates: start: 20190624, end: 20190701
  75. ENALAPRIL [Concomitant]
     Active Substance: ENALAPRIL
     Dosage: 10,MG,DAILY
     Route: 048
     Dates: start: 20190714, end: 20190721
  76. DILTIAZEM [DILTIAZEM HYDROCHLORIDE] [Concomitant]
     Active Substance: DILTIAZEM HYDROCHLORIDE
     Dosage: 75 MG, QID
     Dates: start: 20190713, end: 20190722
  77. DOCUSATE SODIUM. [Concomitant]
     Active Substance: DOCUSATE SODIUM
     Dosage: 100,MG,AS NECESSARY
     Route: 048
     Dates: start: 20190624, end: 20190708
  78. FLUCONAZOLE. [Concomitant]
     Active Substance: FLUCONAZOLE
     Dosage: 200,MG,DAILY
     Route: 048
     Dates: start: 20190624, end: 20190707
  79. ACYCLOVIR [ACICLOVIR] [Concomitant]
     Active Substance: ACYCLOVIR
     Dosage: 400,MG,TWICE DAILY
     Route: 048
     Dates: start: 20190624, end: 20190706

REACTIONS (5)
  - Agitation [Recovered/Resolved]
  - Cognitive disorder [Recovered/Resolved]
  - Tremor [Recovered/Resolved]
  - Aphasia [Recovered/Resolved]
  - Confusional state [Recovered/Resolved]

NARRATIVE: CASE EVENT DATE: 20190701
